FAERS Safety Report 8066533-4 (Version None)
Quarter: 2011Q4

REPORT INFORMATION
  Report Type: 
  Country: None (occurrence: None)
  Receive Date: 20111221
  Receipt Date: 20110929
  Transmission Date: 20120403
  Serious: Yes (Hospitalization)
  Sender: FDA-Public Use
  Company Number: PHEH2011US05469

PATIENT
  Age: 35 Year
  Sex: Female

DRUGS (8)
  1. MUTIVITAMINS (ASCORBIC ACID, ERGOCALCIFEROL, FOLIC ACID, NICOTINAMIDE, [Concomitant]
  2. MORPHINE (MORPHINE) [Concomitant]
  3. VITAMIN D [Concomitant]
  4. PERCOCET (OXYCODONE HYDROCHLORIED, PARACETAMOL) [Concomitant]
  5. CALCTRATE + D (CALCIUM CARBONATE, VITAMIN D NOS) [Concomitant]
  6. HYDROXYUREA [Concomitant]
  7. EXJADE [Suspect]
     Indication: SICKLE CELL ANAEMIA
     Dosage: 500 MG, TID
  8. FOLIC ACID [Concomitant]

REACTIONS (1)
  - SICKLE CELL ANAEMIA WITH CRISIS [None]
